FAERS Safety Report 8847691 (Version 1)
Quarter: 2012Q4

REPORT INFORMATION
  Report Type: 
  Country: MX (occurrence: MX)
  Receive Date: 20121018
  Receipt Date: 20121018
  Transmission Date: 20130627
  Serious: Yes (Death, Hospitalization)
  Sender: FDA-Public Use
  Company Number: PHHY2012MX091336

PATIENT
  Age: 43 Year
  Sex: Female

DRUGS (5)
  1. EXELON PATCH [Suspect]
     Indication: DEMENTIA ALZHEIMER^S TYPE
     Dosage: (4.6 mg/ 5 cm2), daily
     Route: 062
     Dates: start: 201205, end: 20120908
  2. SAXAGLIPTIN [Concomitant]
     Indication: DIABETES MELLITUS
     Dosage: 1 DF, daily
     Dates: start: 201106, end: 201209
  3. SERTRALINE [Concomitant]
     Indication: DEPRESSION
     Dosage: 2 DF, daily
     Dates: start: 2011, end: 201209
  4. BIPERIDEN [Concomitant]
     Indication: TREMOR
     Dates: start: 201208, end: 201209
  5. TRIFUROXINA [Concomitant]
     Indication: HALLUCINATION
     Dosage: 0.5 DF, daily
     Route: 048
     Dates: start: 201208, end: 201209

REACTIONS (2)
  - Post procedural complication [Fatal]
  - Calculus bladder [Unknown]
